FAERS Safety Report 9559347 (Version 4)
Quarter: 2014Q2

REPORT INFORMATION
  Report Type: Spontaneous
  Country: US (occurrence: None)
  Receive Date: 20130925
  Receipt Date: 20140404
  Transmission Date: 20141212
  Serious: Yes (Hospitalization, Other)
  Sender: FDA-Public Use
  Company Number: JPI-P-009318

PATIENT
  Age: 28 Year
  Sex: Male

DRUGS (6)
  1. XYREM [Suspect]
     Indication: NARCOLEPSY
     Dosage: 1.5 G, BID, ORAL
     Route: 048
     Dates: start: 20060908
  2. XYREM [Suspect]
     Indication: CATAPLEXY
     Dosage: 1.5 G, BID, ORAL
     Route: 048
     Dates: start: 20060908
  3. ALL OTHER THERAPEUTIC PRODUCTS [Suspect]
     Indication: PRODUCT USED FOR UNKNOWN INDICATION
     Dosage: UNKNOWN, SINGLE
  4. MODAFINIL (MODAFINIL) [Concomitant]
  5. ADDERALL [Concomitant]
  6. DEXAMFETAMINE SACCHARATE [Concomitant]

REACTIONS (8)
  - Schizophrenia [None]
  - Malaise [None]
  - Suicide attempt [None]
  - Depressed level of consciousness [None]
  - Overdose [None]
  - Therapeutic response changed [None]
  - Intentional overdose [None]
  - Pre-existing condition improved [None]
